FAERS Safety Report 18035556 (Version 1)
Quarter: 2020Q3

REPORT INFORMATION
  Report Type: Spontaneous
  Country: US (occurrence: US)
  Receive Date: 20200716
  Receipt Date: 20200716
  Transmission Date: 20201103
  Serious: Yes (Hospitalization)
  Sender: FDA-Public Use
  Company Number: None

PATIENT
  Age: 76 Year
  Sex: Male
  Weight: 51 kg

DRUGS (1)
  1. PREDNISONE (PREDNISONE 20MG TAB) [Suspect]
     Active Substance: PREDNISONE
     Indication: GIANT CELL ARTERITIS
     Route: 048
     Dates: start: 20200609, end: 20200610

REACTIONS (4)
  - Confusional state [None]
  - Agitation [None]
  - Delirium [None]
  - Paranoia [None]

NARRATIVE: CASE EVENT DATE: 20200610
